FAERS Safety Report 17564974 (Version 1)
Quarter: 2020Q1

REPORT INFORMATION
  Report Type: Spontaneous
  Country: US (occurrence: US)
  Receive Date: 20200313
  Receipt Date: 20200313
  Transmission Date: 20200409
  Serious: Yes (Hospitalization)
  Sender: FDA-Public Use
  Company Number: None

PATIENT
  Age: 58 Year
  Sex: Male

DRUGS (1)
  1. TACROLIMUS (ACCORD) 5MG ACCORD HEALTHCARE [Suspect]
     Active Substance: TACROLIMUS
     Indication: RENAL TRANSPLANT
     Dosage: ?          OTHER DOSE:2;?
     Route: 048
     Dates: start: 20200122, end: 20200311

REACTIONS (2)
  - Blood creatinine abnormal [None]
  - Drug ineffective [None]

NARRATIVE: CASE EVENT DATE: 202002
